FAERS Safety Report 5947456-0 (Version None)
Quarter: 2008Q4

REPORT INFORMATION
  Report Type: 
  Country: None (occurrence: None)
  Receive Date: 20081110
  Receipt Date: 20081014
  Transmission Date: 20090506
  Serious: Yes (Other)
  Sender: FDA-Public Use
  Company Number: US-PFIZER INC-2008087283

PATIENT
  Sex: Female

DRUGS (2)
  1. LIPITOR [Suspect]
  2. TRICOR [Interacting]
     Dosage: TEXT:145MG
     Dates: end: 20080901

REACTIONS (7)
  - BACK PAIN [None]
  - BLADDER DISORDER [None]
  - BLOOD CALCIUM ABNORMAL [None]
  - BLOOD URINE PRESENT [None]
  - DIZZINESS [None]
  - DRUG INTERACTION [None]
  - RENAL IMPAIRMENT [None]
